FAERS Safety Report 11739464 (Version 2)
Quarter: 2016Q1

REPORT INFORMATION
  Report Type: Spontaneous
  Country: None (occurrence: US)
  Receive Date: 20151113
  Receipt Date: 20160201
  Transmission Date: 20160525
  Serious: No
  Sender: FDA-Public Use
  Company Number: US-MATRIXX INITIATIVES, INC.-1044208

PATIENT
  Age: 51 Year
  Sex: Female

DRUGS (1)
  1. ZICAM COLD REMEDY [Suspect]
     Active Substance: ZINC ACETATE\ZINC GLUCONATE
     Indication: NASOPHARYNGITIS
     Route: 048

REACTIONS (4)
  - Dysgeusia [None]
  - Parosmia [None]
  - No therapeutic response [None]
  - Anosmia [None]
